FAERS Safety Report 4478916-X (Version None)
Quarter: 2004Q4

REPORT INFORMATION
  Report Type: 
  Country: None (occurrence: None)
  Receive Date: 20041014
  Receipt Date: 20040927
  Transmission Date: 20050328
  Serious: Yes (Other)
  Sender: FDA-Public Use
  Company Number: 2004236553GB

PATIENT
  Age: 70 Year
  Sex: Female

DRUGS (3)
  1. CELEBREX [Suspect]
     Indication: ARTHRALGIA
     Dosage: 20 MG, QD, ORAL
     Route: 048
     Dates: start: 20040828, end: 20040909
  2. THYROXIN (LEVOTHYROXINE SODIUM) [Concomitant]
  3. CALCICHEW-D3 [Concomitant]

REACTIONS (3)
  - HEADACHE [None]
  - MYALGIA [None]
  - SNEEZING [None]
